FAERS Safety Report 11706097 (Version 1)
Quarter: 2015Q4

REPORT INFORMATION
  Report Type: Spontaneous
  Country: US (occurrence: US)
  Receive Date: 20151106
  Receipt Date: 20151106
  Transmission Date: 20160304
  Serious: No
  Sender: FDA-Public Use
  Company Number: US-BAYER-2015-462576

PATIENT
  Sex: Female

DRUGS (1)
  1. ALEVE [Suspect]
     Active Substance: NAPROXEN SODIUM
     Indication: OSTEOARTHRITIS
     Dosage: 1 UNK, UNK
     Route: 048
     Dates: start: 201510, end: 20151104

REACTIONS (2)
  - Dyspepsia [Recovered/Resolved]
  - Product use issue [None]

NARRATIVE: CASE EVENT DATE: 201510
